FAERS Safety Report 19865859 (Version 1)
Quarter: 2021Q3

REPORT INFORMATION
  Report Type: Spontaneous
  Country: US (occurrence: US)
  Receive Date: 20210921
  Receipt Date: 20210921
  Transmission Date: 20211014
  Serious: Yes (Death, Hospitalization)
  Sender: FDA-Public Use
  Company Number: None

PATIENT
  Age: 21 Year
  Sex: Female
  Weight: 127.3 kg

DRUGS (6)
  1. PREDNISOLONE. [Suspect]
     Active Substance: PREDNISOLONE
     Dates: end: 20210908
  2. ONCASPAR [Suspect]
     Active Substance: PEGASPARGASE
     Dosage: ?          OTHER DOSE:3750 IU;?
     Dates: end: 20210816
  3. VINCRISTINE SULFATE. [Suspect]
     Active Substance: VINCRISTINE SULFATE
     Dates: end: 20210903
  4. DAUNORUBICIN [Suspect]
     Active Substance: DAUNORUBICIN
     Dates: end: 20210903
  5. CYTARABINE. [Suspect]
     Active Substance: CYTARABINE
     Dates: end: 20210813
  6. METHOTREXATE. [Suspect]
     Active Substance: METHOTREXATE
     Dates: end: 20210820

REACTIONS (33)
  - Proctitis [None]
  - Pain in jaw [None]
  - Platelet count decreased [None]
  - Blood triglycerides increased [None]
  - Blood culture positive [None]
  - Cardiac arrest [None]
  - Multiple organ dysfunction syndrome [None]
  - Gamma-glutamyltransferase increased [None]
  - Atelectasis [None]
  - Tachycardia [None]
  - Hypothermia [None]
  - Hypotension [None]
  - Fatigue [None]
  - Dysarthria [None]
  - Blood bilirubin increased [None]
  - Cholecystitis [None]
  - Hepatomegaly [None]
  - Supraventricular tachycardia [None]
  - Pyrexia [None]
  - Neutrophil count decreased [None]
  - Serum ferritin increased [None]
  - Heart rate increased [None]
  - Atrial flutter [None]
  - Pallor [None]
  - Pleural effusion [None]
  - Pancreatitis [None]
  - Hepatic steatosis [None]
  - Tachyarrhythmia [None]
  - Dyspnoea [None]
  - Aspartate aminotransferase increased [None]
  - Liver injury [None]
  - Alanine aminotransferase increased [None]
  - Sepsis [None]

NARRATIVE: CASE EVENT DATE: 20210909
